FAERS Safety Report 19712100 (Version 3)
Quarter: 2021Q3

REPORT INFORMATION
  Report Type: Report from Study
  Country: US (occurrence: US)
  Receive Date: 20210817
  Receipt Date: 20210902
  Transmission Date: 20211014
  Serious: Yes (Other)
  Sender: FDA-Public Use
  Company Number: NVSC2021US182848

PATIENT
  Sex: Female

DRUGS (1)
  1. ENTRESTO [Suspect]
     Active Substance: SACUBITRIL\VALSARTAN
     Indication: PRODUCT USED FOR UNKNOWN INDICATION
     Dosage: 50 MG (24/26 MG), QD (ONE PILL IN EVENING)
     Route: 048

REACTIONS (4)
  - Cardiac failure chronic [Unknown]
  - Seasonal allergy [Unknown]
  - Throat clearing [Unknown]
  - Inappropriate schedule of product administration [Unknown]
